FAERS Safety Report 19208270 (Version 3)
Quarter: 2021Q2

REPORT INFORMATION
  Report Type: Spontaneous
  Country: IN (occurrence: IN)
  Receive Date: 20210503
  Receipt Date: 20210618
  Transmission Date: 20210717
  Serious: Yes (Life-Threatening, Hospitalization, Other)
  Sender: FDA-Public Use
  Company Number: IN-BAXTER-2021BAX009623

PATIENT
  Age: 63 Year
  Sex: Female

DRUGS (2)
  1. CYCLOPHOSPHAMIDE. [Suspect]
     Active Substance: CYCLOPHOSPHAMIDE
     Indication: BREAST CANCER
     Dosage: 2 CYCLICAL
     Route: 065
  2. DOXIL [Suspect]
     Active Substance: DOXORUBICIN HYDROCHLORIDE
     Indication: BREAST CANCER
     Dosage: 2 CYCLICAL
     Route: 065

REACTIONS (3)
  - Diastolic dysfunction [Unknown]
  - Drug interaction [Unknown]
  - Cardiotoxicity [Unknown]
